FAERS Safety Report 21421549 (Version 1)
Quarter: 2022Q4

REPORT INFORMATION
  Report Type: Spontaneous
  Country: JP (occurrence: JP)
  Receive Date: 20221007
  Receipt Date: 20221007
  Transmission Date: 20230113
  Serious: Yes (Other)
  Sender: FDA-Public Use
  Company Number: JP-ELI_LILLY_AND_COMPANY-JP202206009010

PATIENT
  Age: 61 Year
  Sex: Male

DRUGS (2)
  1. DULOXETINE HYDROCHLORIDE [Suspect]
     Active Substance: DULOXETINE HYDROCHLORIDE
     Indication: Depression
     Dosage: 20 MG, DAILY
     Route: 048
     Dates: start: 202103, end: 20210405
  2. DERMATOPHAGOIDES FARINAE\DERMATOPHAGOIDES PTERONYSSINUS [Concomitant]
     Active Substance: DERMATOPHAGOIDES FARINAE\DERMATOPHAGOIDES PTERONYSSINUS
     Route: 048

REACTIONS (12)
  - Vocal cord inflammation [Recovering/Resolving]
  - Dyspnoea [Recovering/Resolving]
  - Pollakiuria [Recovering/Resolving]
  - Musculoskeletal stiffness [Unknown]
  - Hot flush [Recovering/Resolving]
  - Tachycardia [Recovering/Resolving]
  - Tension headache [Recovering/Resolving]
  - Insomnia [Recovering/Resolving]
  - Nausea [Recovering/Resolving]
  - Thirst [Recovering/Resolving]
  - Hyperhidrosis [Recovering/Resolving]
  - Peripheral coldness [Recovering/Resolving]

NARRATIVE: CASE EVENT DATE: 20210326
